FAERS Safety Report 9292500 (Version 1)
Quarter: 2013Q2

REPORT INFORMATION
  Report Type: Spontaneous
  Country: BR (occurrence: BR)
  Receive Date: 20130516
  Receipt Date: 20130516
  Transmission Date: 20140414
  Serious: Yes (Other)
  Sender: FDA-Public Use
  Company Number: BR-BAYER-2013-058390

PATIENT
  Age: 67 Year
  Sex: Female
  Weight: 54 kg

DRUGS (5)
  1. ADALAT OROS [Suspect]
     Indication: HYPERTENSION
     Dosage: 30 MG, QD FOR 2 OR 3 MONTHS
     Route: 048
  2. ASPIRINA PREVENT [Suspect]
     Indication: ANTICOAGULANT THERAPY
     Dosage: 100 MG, QD
     Route: 048
     Dates: start: 20130508
  3. CONCOR [Concomitant]
     Indication: HYPERTENSION
     Dosage: 2.5 MG, BID
     Route: 048
     Dates: start: 201211
  4. DIOVAN [Concomitant]
     Indication: HYPERTENSION
     Dosage: 320 MG, QD
     Route: 048
     Dates: start: 201211
  5. SIMVASTATIN [Concomitant]
     Indication: ANTICOAGULANT THERAPY
     Dosage: 160 MG, QD
     Route: 048
     Dates: start: 20130506

REACTIONS (4)
  - Blood pressure increased [Not Recovered/Not Resolved]
  - Haematochezia [Recovered/Resolved]
  - Medication error [None]
  - Medication residue present [Recovered/Resolved]
